FAERS Safety Report 22701325 (Version 4)
Quarter: 2024Q3

REPORT INFORMATION
  Report Type: Spontaneous
  Country: US (occurrence: US)
  Receive Date: 20230713
  Receipt Date: 20240828
  Transmission Date: 20241016
  Serious: No
  Sender: SANOFI AVENTIS
  Company Number: US-SA-SAC20230712000684

PATIENT
  Age: 34 Year
  Sex: Male

DRUGS (10)
  1. ELOCTATE [Suspect]
     Active Substance: EFMOROCTOCOG ALFA
     Indication: Factor VIII deficiency
     Dosage: 4000 U, QW (EVERY 7 DAYS)
     Route: 042
     Dates: start: 202212
  2. ELOCTATE [Suspect]
     Active Substance: EFMOROCTOCOG ALFA
     Indication: Factor VIII deficiency
     Dosage: 4000 U, QW (EVERY 7 DAYS)
     Route: 042
     Dates: start: 202212
  3. ELOCTATE [Suspect]
     Active Substance: EFMOROCTOCOG ALFA
     Dosage: 4000 U, PRN
     Route: 042
     Dates: start: 202212
  4. ELOCTATE [Suspect]
     Active Substance: EFMOROCTOCOG ALFA
     Dosage: 4000 U, PRN
     Route: 042
     Dates: start: 202212
  5. ELOCTATE [Suspect]
     Active Substance: EFMOROCTOCOG ALFA
     Dosage: 4000 U (3600-4400), Q4D
     Route: 042
  6. ELOCTATE [Suspect]
     Active Substance: EFMOROCTOCOG ALFA
     Dosage: 4000 U (3600-4400), Q4D
     Route: 042
  7. ELOCTATE [Suspect]
     Active Substance: EFMOROCTOCOG ALFA
     Dosage: 2925 U (2633-3217), EVERY 24-48 HOURS AS NEEDED
     Route: 042
  8. ELOCTATE [Suspect]
     Active Substance: EFMOROCTOCOG ALFA
     Dosage: 2925 U (2633-3217), EVERY 24-48 HOURS AS NEEDED
     Route: 042
  9. ELOCTATE [Suspect]
     Active Substance: EFMOROCTOCOG ALFA
     Dosage: 4875 U (4388-5362), EVERY 12-24 HOURS AS NEEDED FOR MAJOR BLEED
     Route: 042
  10. ELOCTATE [Suspect]
     Active Substance: EFMOROCTOCOG ALFA
     Dosage: 4875 U (4388-5362), EVERY 12-24 HOURS AS NEEDED FOR MAJOR BLEED
     Route: 042

REACTIONS (7)
  - Limb injury [Not Recovered/Not Resolved]
  - Traumatic haemorrhage [Recovered/Resolved]
  - Joint injury [Unknown]
  - Traumatic haemorrhage [Not Recovered/Not Resolved]
  - Haemorrhage [Unknown]
  - Tongue biting [Unknown]
  - Tongue haemorrhage [Recovered/Resolved]

NARRATIVE: CASE EVENT DATE: 20230623
